FAERS Safety Report 25872923 (Version 1)
Quarter: 2025Q4

REPORT INFORMATION
  Report Type: Spontaneous
  Country: US (occurrence: US)
  Receive Date: 20251002
  Receipt Date: 20251002
  Transmission Date: 20260117
  Serious: No
  Sender: BAYER HEALTHCARE PHARMACEUTICALS INC.
  Company Number: US-BAYER-2025A127437

PATIENT
  Sex: Female

DRUGS (2)
  1. ESTRADIOL [Suspect]
     Active Substance: ESTRADIOL
  2. PROGESTERONE [Suspect]
     Active Substance: PROGESTERONE
     Route: 062

REACTIONS (3)
  - Muscle tightness [None]
  - Menopause [None]
  - Peripheral swelling [None]
